FAERS Safety Report 24288657 (Version 3)
Quarter: 2024Q4

REPORT INFORMATION
  Report Type: Spontaneous
  Country: GB (occurrence: GB)
  Receive Date: 20240906
  Receipt Date: 20241010
  Transmission Date: 20250114
  Serious: Yes (Other)
  Sender: UCB
  Company Number: GB-UCBSA-2024044382

PATIENT
  Sex: Female

DRUGS (1)
  1. NEUPRO [Suspect]
     Active Substance: ROTIGOTINE
     Indication: Parkinson^s disease
     Dosage: 6 MILLIGRAM, ONCE DAILY (QD)

REACTIONS (3)
  - Parkinson^s disease [Unknown]
  - Drug ineffective [Unknown]
  - Product adhesion issue [Unknown]
